FAERS Safety Report 9045543 (Version 1)
Quarter: 2013Q1

REPORT INFORMATION
  Report Type: Report from Study
  Country: US (occurrence: US)
  Receive Date: 20130131
  Receipt Date: 20130131
  Transmission Date: 20140127
  Serious: No
  Sender: FDA-Public Use
  Company Number: US-ABBOTT-12P-163-1006333-00

PATIENT
  Age: 38 None
  Sex: Female

DRUGS (8)
  1. HUMIRA [Suspect]
     Indication: CROHN^S DISEASE
     Dosage: LOADING DOSE
     Dates: start: 20121015, end: 20121015
  2. HUMIRA [Suspect]
     Dosage: LOADING DOSE
     Dates: start: 20121029, end: 20121029
  3. PREDNISONE [Concomitant]
     Dosage: DAILY FOR 2 WEEKS
  4. PREDNISONE [Concomitant]
     Dosage: FOR 2 WEEKS
  5. PREDNISONE [Concomitant]
     Dosage: DAILY FOR 2 WEEKS
  6. PREDNISONE [Concomitant]
     Dosage: DAILY FOR 2 WEEKS
     Dates: end: 20121109
  7. MULTIVITAMIN [Concomitant]
     Indication: PRODUCT USED FOR UNKNOWN INDICATION
     Dosage: DAILY
  8. VITAMIN D3 [Concomitant]
     Indication: PRODUCT USED FOR UNKNOWN INDICATION
     Dosage: DAILY

REACTIONS (3)
  - Pyrexia [Not Recovered/Not Resolved]
  - Lethargy [Unknown]
  - Headache [Not Recovered/Not Resolved]
